FAERS Safety Report 8163797-3 (Version None)
Quarter: 2012Q1

REPORT INFORMATION
  Report Type: 
  Country: None (occurrence: None)
  Receive Date: 20120224
  Receipt Date: 20120217
  Transmission Date: 20120608
  Serious: Yes (Hospitalization)
  Sender: FDA-Public Use
  Company Number: PHHO2011US08815

PATIENT
  Sex: Female

DRUGS (13)
  1. TASIGNA [Suspect]
     Indication: CHRONIC MYELOID LEUKAEMIA
     Dosage: 400 MG, QD
     Route: 048
     Dates: start: 20051201
  2. HUMALOG [Concomitant]
  3. SIMVASTATIN [Concomitant]
  4. PULMICORT-100 [Concomitant]
  5. ASPIRIN [Concomitant]
  6. GABAPENTIN [Concomitant]
  7. FENOFIBRATE [Concomitant]
  8. VERAMYST [Concomitant]
  9. VITAMIN D [Concomitant]
  10. ALBUTEROL [Concomitant]
  11. CITALOPRAM HYDROBROMIDE [Concomitant]
  12. LANTUS [Concomitant]
  13. PREMARIN [Concomitant]

REACTIONS (4)
  - CEREBROVASCULAR ACCIDENT [None]
  - CEREBRAL ISCHAEMIA [None]
  - CEREBRAL ARTERY STENOSIS [None]
  - PNEUMONIA [None]
